FAERS Safety Report 8917104 (Version 2)
Quarter: 2012Q4

REPORT INFORMATION
  Report Type: 
  Country: DE (occurrence: DE)
  Receive Date: 20121120
  Receipt Date: 20121204
  Transmission Date: 20130627
  Serious: Yes (Other)
  Sender: FDA-Public Use
  Company Number: DE-AMGEN-DEUSP2012073704

PATIENT
  Age: 57 Year
  Sex: Male
  Weight: 71 kg

DRUGS (7)
  1. ENBREL [Suspect]
     Indication: JUVENILE ARTHRITIS
     Dosage: 50 mg, weekly
     Route: 058
     Dates: start: 200308, end: 201207
  2. METHOTREXATE [Concomitant]
     Indication: JUVENILE ARTHRITIS
     Dosage: 15 mg, weekly
     Route: 058
     Dates: start: 200209
  3. PREDNISONE [Concomitant]
     Dosage: 7.5 mg, 1x/day
  4. DOCITON [Concomitant]
     Indication: MIGRAINE PROPHYLAXIS
     Dosage: 10 UNK, 2x/day
  5. IDEOS [Concomitant]
     Dosage: 1 DF, 2x/day
  6. PANTOZOL [Concomitant]
     Dosage: 40 UNK, 1x/day
  7. ACEMETACIN [Concomitant]
     Dosage: 60 UNK, 1x/day

REACTIONS (1)
  - Malignant melanoma [Unknown]
